FAERS Safety Report 8813253 (Version 1)
Quarter: 2012Q4

REPORT INFORMATION
  Report Type: 
  Country: US (occurrence: US)
  Receive Date: 20120927
  Receipt Date: 20120927
  Transmission Date: 20130627
  Serious: No
  Sender: FDA-Public Use
  Company Number: US-AMGEN-USASP2012035760

PATIENT
  Age: 87 Year
  Sex: Female

DRUGS (3)
  1. PROLIA [Suspect]
     Indication: OSTEOPOROSIS POSTMENOPAUSAL
     Dosage: 60 mg, q6mo
     Route: 058
     Dates: start: 20120518
  2. MACRODANTIN [Concomitant]
     Dosage: UNK
     Dates: start: 20120518
  3. MACROBID [Concomitant]
     Indication: URINARY TRACT INFECTION
     Dosage: UNK UNK, bid
     Route: 048
     Dates: start: 20120509, end: 20120530

REACTIONS (4)
  - Tremor [Not Recovered/Not Resolved]
  - Nervousness [Not Recovered/Not Resolved]
  - Anxiety [Not Recovered/Not Resolved]
  - Depression [Not Recovered/Not Resolved]
